FAERS Safety Report 18516455 (Version 1)
Quarter: 2020Q4

REPORT INFORMATION
  Report Type: Spontaneous
  Country: US (occurrence: US)
  Receive Date: 20201117
  Receipt Date: 20201117
  Transmission Date: 20210114
  Serious: Yes (Other)
  Sender: FDA-Public Use
  Company Number: None

PATIENT
  Age: 38 Year
  Sex: Male

DRUGS (8)
  1. CAPLYTA [Suspect]
     Active Substance: LUMATEPERONE
     Indication: SCHIZOPHRENIA
     Dosage: ?          QUANTITY:30 PILLS;?
     Route: 048
     Dates: start: 20200109, end: 20200410
  2. TOPIRAMATE. [Suspect]
     Active Substance: TOPIRAMATE
  3. PHENTERMINE. [Suspect]
     Active Substance: PHENTERMINE
  4. VITAMIN D [Concomitant]
     Active Substance: VITAMIN D NOS
  5. EX-LAX REGULAR STRENGTH STIMULANT LAXATIVE [Concomitant]
     Active Substance: SENNOSIDES
  6. BENAZEPRIL [Concomitant]
     Active Substance: BENAZEPRIL HYDROCHLORIDE
  7. LATUDA [Concomitant]
     Active Substance: LURASIDONE HYDROCHLORIDE
  8. HYDROCHLORTHAZIDE [Concomitant]

REACTIONS (3)
  - Dizziness [None]
  - Illness [None]
  - Nausea [None]

NARRATIVE: CASE EVENT DATE: 20201004
